FAERS Safety Report 10442270 (Version 2)
Quarter: 2014Q3

REPORT INFORMATION
  Report Type: Report from Study
  Country: AU (occurrence: AU)
  Receive Date: 20140909
  Receipt Date: 20140930
  Transmission Date: 20150326
  Serious: Yes (Hospitalization)
  Sender: FDA-Public Use
  Company Number: PHHO2014AU011544

PATIENT
  Age: 67 Year
  Sex: Female
  Weight: 54 kg

DRUGS (9)
  1. BACLOFEN. [Concomitant]
     Active Substance: BACLOFEN
  2. LOXALATE [Concomitant]
     Active Substance: ESCITALOPRAM OXALATE
  3. CRANBERRY. [Concomitant]
     Active Substance: CRANBERRY
  4. MAGMIN [Concomitant]
     Active Substance: MAGNESIUM ASPARTATE
  5. OSTELIN [Concomitant]
     Active Substance: ERGOCALCIFEROL
  6. FTY [Suspect]
     Active Substance: FINGOLIMOD HYDROCHLORIDE
     Indication: PRIMARY PROGRESSIVE MULTIPLE SCLEROSIS
     Dosage: 0.5 MG, UNK
     Dates: start: 20140627
  7. MACRODANTIN [Concomitant]
     Active Substance: NITROFURANTOIN
  8. WARFARIN [Concomitant]
     Active Substance: WARFARIN
  9. MULTI B-FORTE [Concomitant]
     Active Substance: ASCORBIC ACID\NIACINAMIDE\PYRIDOXINE HYDROCHLORIDE\RIBOFLAVIN\THIAMINE HYDROCHLORIDE

REACTIONS (1)
  - Multiple sclerosis [Recovered/Resolved]

NARRATIVE: CASE EVENT DATE: 20140711
